FAERS Safety Report 4646218-4 (Version None)
Quarter: 2005Q2

REPORT INFORMATION
  Report Type: 
  Country: None (occurrence: None)
  Receive Date: 20050422
  Receipt Date: 20050407
  Transmission Date: 20051028
  Serious: Yes (Hospitalization)
  Sender: FDA-Public Use
  Company Number: 05P-087-0294562-00

PATIENT
  Age: 48 Year
  Sex: Female

DRUGS (12)
  1. HUMIRA [Suspect]
     Indication: RHEUMATOID ARTHRITIS
     Dosage: 40 MG, 1 IN 2 WK, SUBCUTANEOUS
     Route: 058
     Dates: start: 20050111, end: 20050128
  2. LOXOPROFEN SODIUM [Concomitant]
  3. PYRIDOXAL PHOSPHATE [Concomitant]
  4. MARZULENE S [Concomitant]
  5. TRIMEBUTINE  MALEATE [Concomitant]
  6. RANITIDINE HYDROCHLORIDE [Concomitant]
  7. METHOTREXATE SODIUM [Concomitant]
  8. FOLIC ACID [Concomitant]
  9. BUCILLAMINE [Concomitant]
  10. PREDNISOLONE [Concomitant]
  11. INDOMETHACIN [Concomitant]
  12. URSODEOXYCHOLIC ACID [Concomitant]

REACTIONS (2)
  - BURSITIS [None]
  - INSOMNIA [None]
